FAERS Safety Report 5290942-X (Version None)
Quarter: 2007Q2

REPORT INFORMATION
  Report Type: 
  Country: None (occurrence: None)
  Receive Date: 20070409
  Receipt Date: 20070327
  Transmission Date: 20071010
  Serious: Yes (Other)
  Sender: FDA-Public Use
  Company Number: JP-PFIZER INC-2007025450

PATIENT
  Age: 17 Year
  Sex: Female

DRUGS (4)
  1. GENOTROPIN [Suspect]
     Indication: HYPOPITUITARISM
     Dosage: DAILY DOSE:.2MG-FREQ:DAILY
     Route: 058
  2. CORTRIL [Concomitant]
     Route: 048
  3. THYRADIN S [Concomitant]
     Route: 048
     Dates: start: 20070101
  4. DESMOPRESSIN [Concomitant]
     Dates: start: 20070101

REACTIONS (2)
  - ALANINE AMINOTRANSFERASE INCREASED [None]
  - ASPARTATE AMINOTRANSFERASE INCREASED [None]
